FAERS Safety Report 8525368-6 (Version None)
Quarter: 2012Q3

REPORT INFORMATION
  Report Type: 
  Country: None (occurrence: None)
  Receive Date: 20120720
  Receipt Date: 20120717
  Transmission Date: 20120928
  Serious: Yes (Other)
  Sender: FDA-Public Use
  Company Number: CA-PFIZER INC-2012172193

PATIENT
  Age: 85 Year
  Sex: Male

DRUGS (5)
  1. TYLENOL [Concomitant]
     Dosage: UNK
  2. VITAMIN B-12 [Concomitant]
     Dosage: UNK
  3. LITHIUM CARBONATE [Concomitant]
     Dosage: UNK
  4. SERAX [Concomitant]
     Dosage: 15 MG, UNK
  5. CELEBREX [Suspect]
     Dosage: 100 MG, 2X/DAY
     Dates: start: 20111001, end: 20120401

REACTIONS (1)
  - LOSS OF CONSCIOUSNESS [None]
